FAERS Safety Report 11903446 (Version 2)
Quarter: 2016Q2

REPORT INFORMATION
  Report Type: Report from Study
  Country: US (occurrence: US)
  Receive Date: 20160110
  Receipt Date: 20160427
  Transmission Date: 20160815
  Serious: No
  Sender: FDA-Public Use
  Company Number: GXBR2015US002688

PATIENT
  Sex: Female

DRUGS (1)
  1. OMNITROPE [Suspect]
     Active Substance: SOMATROPIN
     Indication: BODY HEIGHT BELOW NORMAL
     Dosage: 0.1 MG, QD
     Route: 065
     Dates: start: 201503

REACTIONS (2)
  - Incorrect dose administered by device [Not Recovered/Not Resolved]
  - Drug administered in wrong device [Not Recovered/Not Resolved]
